FAERS Safety Report 7327745-8 (Version None)
Quarter: 2011Q1

REPORT INFORMATION
  Report Type: 
  Country: None (occurrence: None)
  Receive Date: 20110303
  Receipt Date: 20110222
  Transmission Date: 20110831
  Serious: Yes (Hospitalization)
  Sender: FDA-Public Use
  Company Number: DE-BAYER-2011-016987

PATIENT
  Sex: Male

DRUGS (5)
  1. SORAFENIB (RAF KINASE INHIBITOR) [Suspect]
     Indication: RENAL CELL CARCINOMA
     Dosage: UNK
     Dates: start: 20101022, end: 20110126
  2. ASPIRIN [Concomitant]
     Dosage: 100 MG, UNK
     Dates: start: 20100901
  3. KEPPRA [Concomitant]
     Dosage: 500 MG, BID
     Dates: start: 20110131
  4. FORTECORTIN [Concomitant]
     Dosage: 8 MG, TID
     Dates: start: 20110131
  5. PREDNISOLONE SODIUM SUCCINATE INJ [Concomitant]
     Dosage: 250 MG, UNK
     Dates: start: 20110131, end: 20110131

REACTIONS (2)
  - HEMIPARESIS [None]
  - CONVULSION [None]
